FAERS Safety Report 7655277-6 (Version None)
Quarter: 2011Q3

REPORT INFORMATION
  Report Type: 
  Country: None (occurrence: None)
  Receive Date: 20110728
  Receipt Date: 20110718
  Transmission Date: 20111222
  Serious: Yes (Hospitalization)
  Sender: FDA-Public Use
  Company Number: 2010BI022654

PATIENT
  Age: 63 Year
  Sex: Male

DRUGS (19)
  1. OLMESARTAN MEDOXOMIL [Concomitant]
  2. ZEVALIN [Suspect]
     Indication: B-CELL SMALL LYMPHOCYTIC LYMPHOMA STAGE IV
     Dosage: 932 MBQ, X1,IV
     Route: 042
     Dates: start: 20100126, end: 20100126
  3. RITUXAN [Suspect]
     Indication: B-CELL SMALL LYMPHOCYTIC LYMPHOMA STAGE IV
     Dosage: 250 MG/M2 X1, IV DRIP
     Route: 041
     Dates: start: 20100119, end: 20100119
  4. ZOLPIDEM [Concomitant]
  5. TRICHLORMETHIAZIDE [Concomitant]
  6. FAMOTIDINE [Concomitant]
  7. CYTARABINE OCPOSFATE [Concomitant]
  8. ETOPOSIDE [Concomitant]
  9. ZEVALIN [Suspect]
     Indication: B-CELL SMALL LYMPHOCYTIC LYMPHOMA STAGE IV
     Dosage: 130 MBQ,X1,IV
     Route: 042
     Dates: start: 20100119, end: 20100119
  10. MANESIUM OXIDE [Concomitant]
  11. FLUDEOXYGLUCOSE [Concomitant]
  12. POLARAMINE [Concomitant]
  13. VFEND [Concomitant]
  14. CYCLOPHOSPHAMIDE [Concomitant]
  15. DEXAMETHASONE [Concomitant]
  16. RITUXAN [Suspect]
     Indication: B-CELL SMALL LYMPHOCYTIC LYMPHOMA STAGE IV
     Dosage: 250 MG/M2 X1, IV DRIP
     Route: 041
     Dates: start: 20100126, end: 20100126
  17. LOXONIN [Concomitant]
  18. ALLOPURINOL [Concomitant]
  19. RITUXIMAB [Concomitant]

REACTIONS (4)
  - PLATELET COUNT DECREASED [None]
  - NEUTROPHIL COUNT DECREASED [None]
  - ANAEMIA [None]
  - SINUSITIS [None]
